FAERS Safety Report 16645945 (Version 2)
Quarter: 2019Q3

REPORT INFORMATION
  Report Type: Report from Study
  Country: US (occurrence: US)
  Receive Date: 20190730
  Receipt Date: 20190925
  Transmission Date: 20191004
  Serious: No
  Sender: FDA-Public Use
  Company Number: PHEH2019US031197

PATIENT
  Sex: Male

DRUGS (1)
  1. COSENTYX [Suspect]
     Active Substance: SECUKINUMAB
     Indication: PSORIASIS
     Dosage: 300 MG, Q4W
     Route: 058
     Dates: start: 201905

REACTIONS (5)
  - Hypersensitivity [Unknown]
  - Lymphadenopathy [Unknown]
  - Ear pain [Unknown]
  - Oropharyngeal pain [Unknown]
  - Ear discomfort [Unknown]
